FAERS Safety Report 10885848 (Version 2)
Quarter: 2015Q3

REPORT INFORMATION
  Report Type: Spontaneous
  Country: JP (occurrence: None)
  Receive Date: 20150302
  Receipt Date: 20150701
  Transmission Date: 20151125
  Serious: Yes (Other)
  Sender: FDA-Public Use
  Company Number: ABR_02085_2015

PATIENT
  Age: 27 Year
  Sex: Male
  Weight: 55 kg

DRUGS (3)
  1. GLIADEL [Suspect]
     Active Substance: CARMUSTINE
     Indication: MALIGNANT GLIOMA
     Dosage: 61.6 MG, 8 TOTAL INTRACEREBRAL
     Dates: start: 20130611
  2. AVASTIN [Concomitant]
     Active Substance: BEVACIZUMAB
  3. TEMODAL [Concomitant]
     Active Substance: TEMOZOLOMIDE

REACTIONS (4)
  - Brain oedema [None]
  - Condition aggravated [None]
  - Paralysis [None]
  - Hemiplegia [None]

NARRATIVE: CASE EVENT DATE: 20130613
